FAERS Safety Report 15595916 (Version 2)
Quarter: 2018Q4

REPORT INFORMATION
  Report Type: Spontaneous
  Country: US (occurrence: US)
  Receive Date: 20181107
  Receipt Date: 20181214
  Transmission Date: 20190205
  Serious: No
  Sender: FDA-Public Use
  Company Number: US-BAYER-2018-204890

PATIENT
  Age: 81 Year
  Sex: Female
  Weight: 61 kg

DRUGS (2)
  1. CLARITIN [Suspect]
     Active Substance: LORATADINE
     Dosage: UNK
     Route: 048
  2. TYLENOL [Suspect]
     Active Substance: ACETAMINOPHEN
     Dosage: UNK
     Dates: end: 2018

REACTIONS (5)
  - Hypersensitivity [Unknown]
  - Rash [None]
  - Periorbital inflammation [Unknown]
  - Expired product administered [Unknown]
  - Erythema [Unknown]

NARRATIVE: CASE EVENT DATE: 20181101
